FAERS Safety Report 8916235 (Version 1)
Quarter: 2012Q4

REPORT INFORMATION
  Report Type: 
  Country: JP (occurrence: JP)
  Receive Date: 20121120
  Receipt Date: 20121120
  Transmission Date: 20130627
  Serious: Yes (Hospitalization)
  Sender: FDA-Public Use
  Company Number: JP-GLAXOSMITHKLINE-B0845479A

PATIENT
  Sex: Female

DRUGS (2)
  1. LAMICTAL [Suspect]
     Indication: PRODUCT USED FOR UNKNOWN INDICATION
     Dosage: 25MG Per day
     Route: 048
     Dates: start: 20120927
  2. TEGRETOL [Concomitant]
     Route: 048

REACTIONS (7)
  - Hyperthermia [Recovered/Resolved]
  - Oropharyngeal pain [Recovered/Resolved]
  - Rash generalised [Recovered/Resolved]
  - Nausea [Recovered/Resolved]
  - Liver function test abnormal [Recovered/Resolved]
  - Splenomegaly [Recovered/Resolved]
  - Photophobia [Recovered/Resolved]
